FAERS Safety Report 13633103 (Version 1)
Quarter: 2017Q2

REPORT INFORMATION
  Report Type: Spontaneous
  Country: US (occurrence: US)
  Receive Date: 20170531
  Receipt Date: 20170531
  Transmission Date: 20170830
  Serious: No
  Sender: FDA-Public Use
  Company Number: US-ASTELLAS-1508607

PATIENT
  Sex: Female

DRUGS (11)
  1. TAMOXIFEN CITRATE. [Concomitant]
     Active Substance: TAMOXIFEN CITRATE
  2. KLOR-CON [Concomitant]
     Active Substance: POTASSIUM CHLORIDE
  3. FLEXERIL [Concomitant]
     Active Substance: CYCLOBENZAPRINE HYDROCHLORIDE
  4. VITAMIN D3 [Concomitant]
     Active Substance: CHOLECALCIFEROL
  5. XANAX [Concomitant]
     Active Substance: ALPRAZOLAM
  6. ARMOUR THYROID [Concomitant]
     Active Substance: THYROID, PORCINE
  7. LASIX [Concomitant]
     Active Substance: FUROSEMIDE
  8. DIOVAN [Concomitant]
     Active Substance: VALSARTAN
  9. COREG [Concomitant]
     Active Substance: CARVEDILOL
  10. ECOTRIN [Concomitant]
     Active Substance: ASPIRIN
  11. TARCEVA [Suspect]
     Active Substance: ERLOTINIB HYDROCHLORIDE
     Indication: LUNG NEOPLASM MALIGNANT
     Route: 048
     Dates: start: 20141203

REACTIONS (1)
  - Rash [Unknown]
